FAERS Safety Report 23364494 (Version 1)
Quarter: 2024Q1

REPORT INFORMATION
  Report Type: Spontaneous
  Country: US (occurrence: US)
  Receive Date: 20240104
  Receipt Date: 20240104
  Transmission Date: 20240410
  Serious: No
  Sender: FDA-Public Use
  Company Number: US-BIOVITRUM-2023-US-021629

PATIENT
  Age: 12 Month
  Sex: Male
  Weight: 7.6 kg

DRUGS (3)
  1. SYNAGIS [Suspect]
     Active Substance: PALIVIZUMAB
     Indication: Premature baby
     Dosage: 15 MG/KG, ONCE A MONTH?SYNAGIS 100 MG SDV/INJ PF 1 ML?SYNAGIS 50 MG SDV/INJ PF 0.5 ML
     Route: 030
  2. SYNAGIS [Suspect]
     Active Substance: PALIVIZUMAB
     Indication: Neonatal respiratory failure
  3. SYNAGIS [Suspect]
     Active Substance: PALIVIZUMAB
     Indication: Bronchopulmonary dysplasia

REACTIONS (2)
  - Respiratory syncytial virus infection [Unknown]
  - Ear infection [Unknown]
